FAERS Safety Report 24139226 (Version 4)
Quarter: 2024Q3

REPORT INFORMATION
  Report Type: Spontaneous
  Country: IT (occurrence: IT)
  Receive Date: 20240726
  Receipt Date: 20240829
  Transmission Date: 20241016
  Serious: Yes (Other)
  Sender: MSN LABORATORIES
  Company Number: IT-ROCHE-10000000989

PATIENT

DRUGS (11)
  1. PACLITAXEL [Suspect]
     Active Substance: PACLITAXEL
     Indication: HER2 positive breast cancer
     Dosage: 120 MG (80 MG/MQ) Q7 DAYS FOR 18 WEEKS
     Route: 065
     Dates: start: 202211
  2. PACLITAXEL [Suspect]
     Active Substance: PACLITAXEL
     Dosage: 135 MG (80 MG/MQ) Q7 DAYS FOR 12 WEEKS
     Route: 065
     Dates: start: 20230224, end: 20230519
  3. CYCLOPHOSPHAMIDE [Suspect]
     Active Substance: CYCLOPHOSPHAMIDE
     Indication: HER2 positive breast cancer
     Dosage: 4 CYCLES
     Route: 065
  4. EPIRUBICIN [Suspect]
     Active Substance: EPIRUBICIN
     Indication: HER2 positive breast cancer
     Dosage: 4 CYCLES
     Route: 065
  5. LEUPROLIDE ACETATE [Suspect]
     Active Substance: ISOPROPYL ALCOHOL\LEUPROLIDE ACETATE
     Indication: HER2 positive breast cancer
     Route: 065
  6. PERTUZUMAB [Suspect]
     Active Substance: PERTUZUMAB
     Indication: HER2 positive breast cancer
     Dosage: FOLLOWED BY 420 MG EVERY 21 DAYS
     Route: 065
     Dates: start: 20230225
  7. PERTUZUMAB [Suspect]
     Active Substance: PERTUZUMAB
     Dosage: ON DAY 1
     Route: 065
     Dates: start: 202211
  8. PERTUZUMAB [Suspect]
     Active Substance: PERTUZUMAB
     Dosage: ON DAY 1
     Route: 065
     Dates: start: 20230224, end: 20230224
  9. TRASTUZUMAB [Suspect]
     Active Substance: TRASTUZUMAB
     Indication: HER2 positive breast cancer
     Dosage: 8 MG/KG DAY 1
     Route: 065
     Dates: start: 202211
  10. TRASTUZUMAB [Suspect]
     Active Substance: TRASTUZUMAB
     Dosage: 486 MG (6 MG/MQ) Q3 WEEKS
     Route: 065
     Dates: start: 20230225
  11. TRASTUZUMAB [Suspect]
     Active Substance: TRASTUZUMAB
     Dosage: 8 MG/KG DAY 1
     Route: 065
     Dates: start: 20230224, end: 20230224

REACTIONS (3)
  - Dysentery [Recovered/Resolved]
  - Pyrexia [Unknown]
  - Infusion related reaction [Recovered/Resolved]

NARRATIVE: CASE EVENT DATE: 20230322
